FAERS Safety Report 9995115 (Version 2)
Quarter: 2014Q1

REPORT INFORMATION
  Report Type: Spontaneous
  Country: GB (occurrence: GB)
  Receive Date: 20140311
  Receipt Date: 20140311
  Transmission Date: 20141002
  Serious: Yes (Death)
  Sender: FDA-Public Use
  Company Number: GB-UCBSA-112993

PATIENT
  Age: 79 Year
  Sex: Male

DRUGS (6)
  1. NEUPRO [Suspect]
     Indication: PARKINSON^S DISEASE
     Dosage: 16 MG/24 HR
     Route: 062
     Dates: start: 2014
  2. SINEMET [Concomitant]
     Route: 048
  3. PRAMIPEXOLE [Concomitant]
     Route: 048
  4. AVODART [Concomitant]
  5. TAMSULOSIN [Concomitant]
  6. METRONIDAZOLE [Concomitant]

REACTIONS (2)
  - Sepsis [Fatal]
  - Wrong technique in drug usage process [Unknown]
